FAERS Safety Report 13018989 (Version 1)
Quarter: 2016Q4

REPORT INFORMATION
  Report Type: Spontaneous
  Country: US (occurrence: US)
  Receive Date: 20161212
  Receipt Date: 20161212
  Transmission Date: 20170207
  Serious: No
  Sender: FDA-Public Use
  Company Number: US-RECKITT BENCKISER HEALTHCARE INT LIMITED-RB-84508-2016

PATIENT
  Age: 8 Year
  Sex: Female

DRUGS (1)
  1. DELSYM [Suspect]
     Active Substance: DEXTROMETHORPHAN
     Indication: PRODUCT USED FOR UNKNOWN INDICATION
     Dosage: PRODUCT GIVEN ACCORDING TO THE DIRECTIONS FOR HER AGE, SINGLE
     Route: 065
     Dates: start: 20160402, end: 20160402

REACTIONS (3)
  - Discomfort [Not Recovered/Not Resolved]
  - Product odour abnormal [Unknown]
  - Dyspepsia [Not Recovered/Not Resolved]

NARRATIVE: CASE EVENT DATE: 20160402
